FAERS Safety Report 5106992-X (Version None)
Quarter: 2006Q3

REPORT INFORMATION
  Report Type: 
  Country: None (occurrence: None)
  Receive Date: 20060913
  Receipt Date: 20060905
  Transmission Date: 20061208
  Serious: Yes (Life-Threatening)
  Sender: FDA-Public Use
  Company Number: 056-C5013-06090090

PATIENT
  Age: 78 Year
  Sex: Female
  Weight: 52 kg

DRUGS (12)
  1. CC-5013 (LENALIDOMIDE) (CAPSULES) [Suspect]
     Indication: MYELODYSPLASTIC SYNDROME
     Dosage: SEE IMAGE
     Route: 048
     Dates: start: 20060519, end: 20060606
  2. CC-5013 (LENALIDOMIDE) (CAPSULES) [Suspect]
     Indication: MYELODYSPLASTIC SYNDROME
     Dosage: SEE IMAGE
     Route: 048
     Dates: start: 20060725, end: 20060731
  3. EFFEXOR [Concomitant]
  4. DAFALGAN (PARACETAMOL) [Concomitant]
  5. TOPALGIC (TRAMADOL) [Concomitant]
  6. DESFERAL (DEFEROXAMINE MESILATE) [Concomitant]
  7. NEUPOGEN [Concomitant]
  8. TRANXENE [Concomitant]
  9. RHYTHMOL (PROPAFENONE) [Concomitant]
  10. IMOVANE (ZOPICLONE) [Concomitant]
  11. MOTILIUM [Concomitant]
  12. TRANSIPEG (MACROGOL) [Concomitant]

REACTIONS (3)
  - BLOOD TRIGLYCERIDES INCREASED [None]
  - BONE MARROW FAILURE [None]
  - HISTIOCYTOSIS HAEMATOPHAGIC [None]
